FAERS Safety Report 8531628-5 (Version None)
Quarter: 2012Q3

REPORT INFORMATION
  Report Type: 
  Country: None (occurrence: None)
  Receive Date: 20120723
  Receipt Date: 20120718
  Transmission Date: 20120928
  Serious: Yes (Hospitalization, Other)
  Sender: FDA-Public Use
  Company Number: US-ROCHE-792256

PATIENT
  Sex: Female
  Weight: 43.13 kg

DRUGS (5)
  1. SOTRET [Suspect]
     Indication: ACNE
     Route: 065
     Dates: start: 20040101, end: 20050101
  2. SOTRET [Suspect]
     Dates: start: 20090101, end: 20100101
  3. AMNESTEEM [Suspect]
     Dates: start: 20090101, end: 20100101
  4. AMNESTEEM [Suspect]
     Indication: ACNE
     Route: 065
     Dates: start: 20040101, end: 20050101
  5. ACCUTANE [Suspect]
     Indication: ACNE
     Route: 065
     Dates: start: 20081101, end: 20091204

REACTIONS (14)
  - VOLVULUS [None]
  - INTESTINAL OBSTRUCTION [None]
  - BLOOD CHOLESTEROL INCREASED [None]
  - IRON DEFICIENCY ANAEMIA [None]
  - PYELONEPHRITIS ACUTE [None]
  - SUICIDAL IDEATION [None]
  - INFLAMMATORY BOWEL DISEASE [None]
  - BLOOD TRIGLYCERIDES INCREASED [None]
  - HEPATIC ENZYME INCREASED [None]
  - DRY SKIN [None]
  - LIP DRY [None]
  - IRRITABLE BOWEL SYNDROME [None]
  - DEPRESSION [None]
  - MOLLUSCUM CONTAGIOSUM [None]
